FAERS Safety Report 7721618-4 (Version None)
Quarter: 2011Q3

REPORT INFORMATION
  Report Type: 
  Country: None (occurrence: None)
  Receive Date: 20110831
  Receipt Date: 20110823
  Transmission Date: 20111222
  Serious: Yes (Life-Threatening, Hospitalization, Disabling)
  Sender: FDA-Public Use
  Company Number: GB-TEVA-298183ISR

PATIENT
  Age: 76 Year
  Sex: Male
  Weight: 57.7 kg

DRUGS (1)
  1. CIPROFLOXACIN HCL [Suspect]
     Indication: DIVERTICULITIS
     Dosage: 250 MILLIGRAM;
     Route: 048
     Dates: start: 20030630, end: 20110717

REACTIONS (2)
  - ABDOMINAL DISTENSION [None]
  - GASTROINTESTINAL NECROSIS [None]
